FAERS Safety Report 10220947 (Version 1)
Quarter: 2014Q2

REPORT INFORMATION
  Report Type: Spontaneous
  Country: JP (occurrence: JP)
  Receive Date: 20140606
  Receipt Date: 20140606
  Transmission Date: 20141212
  Serious: Yes (Hospitalization)
  Sender: FDA-Public Use
  Company Number: JP-JNJFOC-20140520217

PATIENT
  Age: 79 Year
  Sex: Female

DRUGS (5)
  1. REMICADE [Suspect]
     Indication: COLITIS ULCERATIVE
     Dosage: FIRST DOSE OF INFLIXIMAB
     Route: 042
     Dates: start: 20130607
  2. REMICADE [Suspect]
     Indication: COLITIS ULCERATIVE
     Dosage: SEVENTH DOSE OF INFLIXIMAB
     Route: 042
     Dates: start: 20140307
  3. PENTASA [Concomitant]
     Route: 065
  4. PREDONINE [Concomitant]
     Route: 065
  5. IMURAN [Concomitant]
     Route: 048
     Dates: start: 20130924

REACTIONS (1)
  - Atypical mycobacterial infection [Recovering/Resolving]
